FAERS Safety Report 8550324-1 (Version None)
Quarter: 2012Q3

REPORT INFORMATION
  Report Type: 
  Country: None (occurrence: None)
  Receive Date: 20120730
  Receipt Date: 20110603
  Transmission Date: 20120928
  Serious: No
  Sender: FDA-Public Use
  Company Number: US-ALLERGAN-1107612US

PATIENT
  Age: 35 Year
  Sex: Female

DRUGS (1)
  1. LATISSE [Suspect]
     Indication: HYPOTRICHOSIS
     Dosage: UNK
     Dates: start: 20110430, end: 20110531

REACTIONS (3)
  - ERYTHEMA OF EYELID [None]
  - WRONG TECHNIQUE IN DRUG USAGE PROCESS [None]
  - EYELIDS PRURITUS [None]
